FAERS Safety Report 16649789 (Version 4)
Quarter: 2019Q3

REPORT INFORMATION
  Report Type: Report from Study
  Country: None (occurrence: US)
  Receive Date: 20190730
  Receipt Date: 20190923
  Transmission Date: 20191004
  Serious: Yes (Hospitalization, Other)
  Sender: FDA-Public Use
  Company Number: US-ABBVIE-19K-163-2869803-00

PATIENT
  Age: 72 Year
  Sex: Male

DRUGS (3)
  1. HUMIRA [Suspect]
     Active Substance: ADALIMUMAB
     Dosage: STARTING DOSE, CITRATE FREE
     Route: 058
     Dates: start: 20190503, end: 20190503
  2. HUMIRA [Suspect]
     Active Substance: ADALIMUMAB
     Indication: COLITIS ULCERATIVE
     Dosage: STARTING DOSE, CITRATE FREE
     Route: 058
     Dates: start: 20190503, end: 20190503
  3. HUMIRA [Suspect]
     Active Substance: ADALIMUMAB
     Dosage: CITRATE FREE
     Route: 058
     Dates: start: 2019

REACTIONS (5)
  - Fistula [Recovered/Resolved]
  - Anal fistula [Recovered/Resolved]
  - Anaemia [Not Recovered/Not Resolved]
  - Venous haemorrhage [Not Recovered/Not Resolved]
  - Spleen disorder [Unknown]

NARRATIVE: CASE EVENT DATE: 2019
